FAERS Safety Report 15211600 (Version 1)
Quarter: 2018Q3

REPORT INFORMATION
  Report Type: Spontaneous
  Country: US (occurrence: US)
  Receive Date: 20180702
  Receipt Date: 20180702
  Transmission Date: 20181010
  Serious: No
  Sender: FDA-Public Use
  Company Number: None

PATIENT
  Age: 58 Year
  Sex: Male

DRUGS (1)
  1. DULOXETINE. [Suspect]
     Active Substance: DULOXETINE
     Route: 048
     Dates: start: 20180504, end: 20180701

REACTIONS (5)
  - Mood swings [None]
  - Somnolence [None]
  - Therapeutic response changed [None]
  - Product substitution issue [None]
  - Pain [None]

NARRATIVE: CASE EVENT DATE: 20180701
